FAERS Safety Report 15247203 (Version 1)
Quarter: 2018Q3

REPORT INFORMATION
  Report Type: Other
  Country: US (occurrence: US)
  Receive Date: 20180807
  Receipt Date: 20180807
  Transmission Date: 20181010
  Serious: Yes (Hospitalization)
  Sender: FDA-Public Use
  Company Number: US-AJANTA PHARMA USA INC.-2053358

PATIENT
  Age: 16 Month
  Sex: Female

DRUGS (1)
  1. OMEPRAZOLE AND SODIUM BICARBONATE [Suspect]
     Active Substance: OMEPRAZOLE\SODIUM BICARBONATE

REACTIONS (7)
  - Aspiration [Recovered/Resolved]
  - Hypernatraemia [Recovered/Resolved]
  - Hypokalaemia [Recovered/Resolved]
  - Respiratory distress [Recovered/Resolved]
  - Accidental overdose [Recovered/Resolved]
  - Metabolic alkalosis [Recovered/Resolved]
  - Electrocardiogram QT prolonged [Recovered/Resolved]
